FAERS Safety Report 19934354 (Version 2)
Quarter: 2023Q2

REPORT INFORMATION
  Report Type: Report from Study
  Country: JP (occurrence: None)
  Receive Date: 20211008
  Receipt Date: 20230606
  Transmission Date: 20230722
  Serious: Yes (Other)
  Sender: FDA-Public Use
  Company Number: JP-MERCK HEALTHCARE KGAA-9268028

PATIENT
  Age: 60 Year
  Sex: Male

DRUGS (5)
  1. AVELUMAB [Suspect]
     Active Substance: AVELUMAB
     Indication: Metastatic renal cell carcinoma
     Dosage: ADMINISTRATION EVERY 2 WEEKS UNTIL AROUND THE 24TH MONTH.
     Route: 042
  2. AVELUMAB [Suspect]
     Active Substance: AVELUMAB
     Dosage: ADMINISTRATION EVERY 4 WEEK FROM 24TH MONTH TO THE 30TH MONTH.
  3. AXITINIB [Concomitant]
     Active Substance: AXITINIB
     Indication: Metastatic renal cell carcinoma
     Dosage: UNTIL AROUND THE 2ND MONTH
     Route: 048
  4. AXITINIB [Concomitant]
     Active Substance: AXITINIB
     Dosage: ADMINISTERED FOR 5 DOSES AND TEMPORARILY DISCONTINUED FOR 2 DOSES
     Route: 048
  5. AXITINIB [Concomitant]
     Active Substance: AXITINIB
     Dosage: AROUND THE 2ND MONTH TO THE 30TH MONTH

REACTIONS (4)
  - Protein urine present [Unknown]
  - Blood thyroid stimulating hormone increased [Unknown]
  - Blood creatinine increased [Recovered/Resolved]
  - Proteinuria [Unknown]
